FAERS Safety Report 10869069 (Version 1)
Quarter: 2015Q1

REPORT INFORMATION
  Report Type: Spontaneous
  Country: DE (occurrence: DE)
  Receive Date: 20150225
  Receipt Date: 20150225
  Transmission Date: 20150721
  Serious: Yes (Hospitalization, Other)
  Sender: FDA-Public Use
  Company Number: DE-ABBVIE-14P-062-1307698-00

PATIENT
  Age: 77 Year
  Sex: Female

DRUGS (2)
  1. DUODOPA [Suspect]
     Active Substance: CARBIDOPA\LEVODOPA
     Indication: PARKINSON^S DISEASE
     Route: 050
     Dates: start: 20120227, end: 20120305
  2. DUODOPA [Suspect]
     Active Substance: CARBIDOPA\LEVODOPA
     Dosage: MD 4.5ML, CRD 2.0ML/H, ED 1.5ML
     Route: 050
     Dates: start: 20120305

REACTIONS (4)
  - Fall [Recovering/Resolving]
  - Acarodermatitis [Unknown]
  - Femoral neck fracture [Recovering/Resolving]
  - Pubis fracture [Recovering/Resolving]

NARRATIVE: CASE EVENT DATE: 20141111
